FAERS Safety Report 5191699-3 (Version None)
Quarter: 2006Q4

REPORT INFORMATION
  Report Type: 
  Country: None (occurrence: None)
  Receive Date: 20061226
  Receipt Date: 20060929
  Transmission Date: 20070319
  Serious: Yes (Other)
  Sender: FDA-Public Use
  Company Number: US-MERCK-0610USA00343

PATIENT
  Age: 14 Year
  Sex: Male
  Weight: 45 kg

DRUGS (6)
  1. SINGULAIR [Suspect]
     Indication: RHINITIS ALLERGIC
     Route: 048
     Dates: start: 20060501
  2. TRILEPTAL [Concomitant]
     Route: 065
  3. REMERON [Concomitant]
     Route: 065
  4. STRATTERA [Concomitant]
     Route: 065
  5. CLONIDINE [Concomitant]
     Route: 065
  6. CYLERT [Concomitant]
     Route: 065

REACTIONS (2)
  - GRAND MAL CONVULSION [None]
  - OVERDOSE [None]
